FAERS Safety Report 5559155-8 (Version None)
Quarter: 2007Q4

REPORT INFORMATION
  Report Type: 
  Country: None (occurrence: None)
  Receive Date: 20071214
  Receipt Date: 20070919
  Transmission Date: 20080405
  Serious: No
  Sender: FDA-Public Use
  Company Number: US-ABBOTT-07P-163-0417886-00

PATIENT
  Sex: Female
  Weight: 69.916 kg

DRUGS (5)
  1. HUMIRA [Suspect]
     Indication: CROHN'S DISEASE
     Dosage: 160MG LOADING DOSE
     Route: 058
     Dates: start: 20070302, end: 20070316
  2. HUMIRA [Suspect]
     Route: 058
     Dates: start: 20070316, end: 20070430
  3. HUMIRA [Suspect]
     Route: 058
     Dates: start: 20070430
  4. DULOXETINE HYDROCHLORIDE [Concomitant]
     Indication: ANXIETY
     Route: 048
  5. DULOXETINE HYDROCHLORIDE [Concomitant]
     Indication: DEPRESSION

REACTIONS (2)
  - NAUSEA [None]
  - TREMOR [None]
